FAERS Safety Report 7800444-1 (Version None)
Quarter: 2011Q4

REPORT INFORMATION
  Report Type: 
  Country: None (occurrence: None)
  Receive Date: 20111006
  Receipt Date: 20110930
  Transmission Date: 20120403
  Serious: Yes (Hospitalization, Other)
  Sender: FDA-Public Use
  Company Number: JP-ABBOTT-11P-087-0860235-00

PATIENT
  Sex: Female
  Weight: 49.3 kg

DRUGS (12)
  1. HUMIRA [Suspect]
     Indication: CROHN'S DISEASE
     Route: 058
     Dates: start: 20110303, end: 20110303
  2. ANTIBIOTICS-RESISTANT LACTIC ACID BACTERIAE [Concomitant]
     Indication: CROHN'S DISEASE
     Route: 048
  3. LOXOPROFEN SODIUM HYDRATE [Concomitant]
     Indication: PRODUCT USED FOR UNKNOWN INDICATION
     Route: 048
  4. LANSOPRAZOLE [Concomitant]
     Indication: CROHN'S DISEASE
     Route: 048
  5. SCOPOLAMINE BUTYLBROMIDE [Concomitant]
     Indication: PAIN MANAGEMENT
     Route: 048
     Dates: start: 20110511
  6. DICLOFENAC SODIUM [Concomitant]
     Indication: PRODUCT USED FOR UNKNOWN INDICATION
     Route: 048
  7. HUMIRA [Suspect]
     Dates: start: 20110331, end: 20110331
  8. FEXOFENADINE HYDROCHLORIDE [Concomitant]
     Indication: PRODUCT USED FOR UNKNOWN INDICATION
     Route: 048
  9. BUPRENORPHINE HCL [Concomitant]
     Indication: PRODUCT USED FOR UNKNOWN INDICATION
     Route: 054
     Dates: start: 20110317
  10. HUMIRA [Suspect]
     Dates: start: 20110317, end: 20110317
  11. HUMIRA [Suspect]
     Dates: start: 20110414
  12. MESALAMINE [Concomitant]
     Indication: CROHN'S DISEASE
     Route: 048

REACTIONS (8)
  - ABDOMINAL PAIN [None]
  - GASTROINTESTINAL HYPERMOTILITY [None]
  - VOMITING [None]
  - INTESTINAL STENOSIS [None]
  - HYPOALBUMINAEMIA [None]
  - ABDOMINAL DISTENSION [None]
  - CONDITION AGGRAVATED [None]
  - OEDEMA PERIPHERAL [None]
